FAERS Safety Report 5641036-2 (Version None)
Quarter: 2008Q1

REPORT INFORMATION
  Report Type: 
  Country: None (occurrence: None)
  Receive Date: 20080131
  Receipt Date: 20071030
  Transmission Date: 20080703
  Serious: Yes (Other)
  Sender: FDA-Public Use
  Company Number: 163-21880-07101775

PATIENT
  Age: 54 Year
  Sex: Female

DRUGS (6)
  1. REVLIMID [Suspect]
     Indication: MULTIPLE MYELOMA
     Dosage: 15 MG, QD X21 DAYS Q 28D, ORAL; 25 MG, QD X21 DAYS Q28D, ORAL
     Route: 048
     Dates: start: 20070801
  2. REVLIMID [Suspect]
     Indication: MULTIPLE MYELOMA
     Dosage: 15 MG, QD X21 DAYS Q 28D, ORAL; 25 MG, QD X21 DAYS Q28D, ORAL
     Route: 048
     Dates: start: 20071025
  3. DEXAMETHASONE TAB [Concomitant]
  4. DIAZEPAM [Concomitant]
  5. ATENOLOL [Concomitant]
  6. PRBC (BLOOD CELLS, PACKED HUMAN) [Concomitant]

REACTIONS (1)
  - PANCYTOPENIA [None]
